FAERS Safety Report 24068042 (Version 4)
Quarter: 2024Q3

REPORT INFORMATION
  Report Type: Spontaneous
  Country: ZA (occurrence: ZA)
  Receive Date: 20240710
  Receipt Date: 20240923
  Transmission Date: 20241016
  Serious: Yes (Other)
  Sender: CELLTRION
  Company Number: ZA-ADCOCK INGRAM-2024ZA014626

PATIENT

DRUGS (3)
  1. INFLIXIMAB [Suspect]
     Active Substance: INFLIXIMAB
     Indication: Psoriatic arthropathy
     Dosage: 500MG INTRAVENOUS INFUSION AT 0 WEEKS
     Route: 042
     Dates: start: 20240613
  2. INFLIXIMAB [Suspect]
     Active Substance: INFLIXIMAB
     Dosage: INFUSION #2
     Route: 042
  3. CORTISONE [Concomitant]
     Active Substance: CORTISONE

REACTIONS (10)
  - Tinnitus [Not Recovered/Not Resolved]
  - Poor venous access [Not Recovered/Not Resolved]
  - Influenza like illness [Unknown]
  - Palpitations [Recovered/Resolved]
  - Hypertension [Recovered/Resolved]
  - Headache [Recovered/Resolved]
  - Fatigue [Recovered/Resolved]
  - Infusion site bruising [Not Recovered/Not Resolved]
  - Infusion site pain [Not Recovered/Not Resolved]
  - Therapy cessation [Unknown]

NARRATIVE: CASE EVENT DATE: 20240613
